FAERS Safety Report 6732604-5 (Version None)
Quarter: 2010Q2

REPORT INFORMATION
  Report Type: 
  Country: None (occurrence: None)
  Receive Date: 20100519
  Receipt Date: 20100514
  Transmission Date: 20101027
  Serious: Yes (Death, Other)
  Sender: FDA-Public Use
  Company Number: PHHY2010IN31132

PATIENT
  Age: 60 Year
  Sex: Male

DRUGS (1)
  1. SEBIVO [Suspect]
     Dosage: UNK
     Route: 048
     Dates: start: 20090601

REACTIONS (1)
  - HEPATIC NEOPLASM MALIGNANT [None]
